FAERS Safety Report 9539670 (Version 1)
Quarter: 2013Q3

REPORT INFORMATION
  Report Type: Spontaneous
  Country: US (occurrence: US)
  Receive Date: 20130920
  Receipt Date: 20130920
  Transmission Date: 20140515
  Serious: Yes (Hospitalization)
  Sender: FDA-Public Use
  Company Number: US-TARO-2013P1019323

PATIENT
  Sex: Female

DRUGS (1)
  1. MALATHION LOTION USP 0.5% [Suspect]
     Route: 061

REACTIONS (1)
  - Respiratory disorder [Unknown]
